FAERS Safety Report 7884667-1 (Version None)
Quarter: 2011Q4

REPORT INFORMATION
  Report Type: 
  Country: None (occurrence: None)
  Receive Date: 20111102
  Receipt Date: 20111010
  Transmission Date: 20120403
  Serious: Yes (Hospitalization)
  Sender: FDA-Public Use
  Company Number: ES-AMGEN-KDC423903

PATIENT
  Age: 72 Year
  Sex: Female

DRUGS (6)
  1. INNOHEP [Concomitant]
     Dosage: 0.9 ML, UNK
  2. IRINOTECAN HCL [Concomitant]
     Indication: COLORECTAL CANCER METASTATIC
     Dosage: 180 MG/M2, Q2WK
     Route: 042
     Dates: start: 20100617, end: 20100702
  3. PANITUMUMAB [Suspect]
     Indication: COLORECTAL CANCER METASTATIC
     Dosage: 4 MG/KG, Q2WK
     Route: 042
     Dates: start: 20100617, end: 20100702
  4. FLUOROURACIL [Concomitant]
     Indication: COLORECTAL CANCER METASTATIC
     Dosage: 2400 MG/M2, Q2WK
     Route: 042
     Dates: start: 20100617, end: 20100702
  5. FLUOROURACIL [Concomitant]
     Dosage: 400 MG/M2, Q2WK
     Route: 040
     Dates: start: 20100617, end: 20100702
  6. LEUCOVORIN CALCIUM [Concomitant]
     Indication: COLORECTAL CANCER METASTATIC
     Dosage: 400 MG/M2, Q2WK
     Route: 042
     Dates: start: 20100617, end: 20100702

REACTIONS (1)
  - DEVICE RELATED INFECTION [None]
